FAERS Safety Report 18681383 (Version 1)
Quarter: 2020Q4

REPORT INFORMATION
  Report Type: Spontaneous
  Country: GB (occurrence: GB)
  Receive Date: 20201229
  Receipt Date: 20201229
  Transmission Date: 20210114
  Serious: Yes (Other)
  Sender: FDA-Public Use
  Company Number: GB-PURDUE-USA-2020-0192682

PATIENT
  Age: 41 Year
  Sex: Male
  Weight: 108.2 kg

DRUGS (1)
  1. BUPRENORPHINE. [Suspect]
     Active Substance: BUPRENORPHINE
     Indication: PAIN
     Dosage: 20 MCG, UNK
     Route: 062
     Dates: start: 20201125, end: 20201203

REACTIONS (3)
  - Nausea [Not Recovered/Not Resolved]
  - Euphoric mood [Unknown]
  - Sluggishness [Unknown]

NARRATIVE: CASE EVENT DATE: 20201203
